FAERS Safety Report 7755473-3 (Version None)
Quarter: 2011Q3

REPORT INFORMATION
  Report Type: 
  Country: None (occurrence: None)
  Receive Date: 20110916
  Receipt Date: 20110912
  Transmission Date: 20111222
  Serious: Yes (Hospitalization, Other)
  Sender: FDA-Public Use
  Company Number: JP-PFIZER INC-2011175104

PATIENT
  Age: 68 Year
  Sex: Female
  Weight: 49.7 kg

DRUGS (12)
  1. ALOSENN [Concomitant]
     Indication: CONSTIPATION
     Dosage: 0.5 G, 1X/DAY
     Dates: start: 20110525, end: 20110528
  2. LYRICA [Suspect]
     Indication: PAIN
     Dosage: 25 MG, 1X/DAY
     Route: 048
     Dates: start: 20110525, end: 20110525
  3. LYRICA [Suspect]
     Dosage: 75 MG, 2X/DAY
     Route: 048
     Dates: start: 20110526, end: 20110615
  4. LOXONIN [Concomitant]
     Dosage: UNK
     Route: 048
     Dates: start: 20110516, end: 20110525
  5. SELBEX [Concomitant]
     Indication: GASTRITIS
     Dosage: 50 MG, 3X/DAY
     Route: 048
     Dates: start: 20110525, end: 20110615
  6. ZOLPIDEM [Suspect]
     Indication: INSOMNIA
     Dosage: 5 MG, 1X/DAY
     Route: 048
     Dates: start: 20110525, end: 20110615
  7. AMOXAPINE [Suspect]
     Indication: PAIN
     Dosage: 25 MG, 1X/DAY
     Route: 048
     Dates: start: 20110525, end: 20110615
  8. MAGNESIUM SULFATE [Concomitant]
     Indication: CONSTIPATION
     Dosage: 500 MG, 2X/DAY
     Route: 048
     Dates: start: 20110525, end: 20110615
  9. VALTREX [Concomitant]
     Dosage: UNK
     Dates: start: 20110509, end: 20110516
  10. METHYCOBAL [Concomitant]
     Indication: NEURALGIA
     Dosage: 500 UG, 3X/DAY
     Route: 048
     Dates: start: 20110516, end: 20110615
  11. ACETAMINOPHEN [Concomitant]
     Indication: PAIN
     Dosage: 400 MG, 3X/DAY
     Route: 048
     Dates: start: 20110520, end: 20110525
  12. JUVELA [Concomitant]
     Dosage: 100 MG, UNK
     Route: 048
     Dates: start: 20110520, end: 20110525

REACTIONS (2)
  - HEPATIC FUNCTION ABNORMAL [None]
  - DRUG ERUPTION [None]
